FAERS Safety Report 10130799 (Version 1)
Quarter: 2014Q2

REPORT INFORMATION
  Report Type: Spontaneous
  Country: US (occurrence: None)
  Receive Date: 20140425
  Receipt Date: 20140425
  Transmission Date: 20141212
  Serious: No
  Sender: FDA-Public Use
  Company Number: None

PATIENT
  Age: 19 Year
  Sex: Female
  Weight: 100.7 kg

DRUGS (1)
  1. FERAHEME [Suspect]
     Indication: IRON DEFICIENCY ANAEMIA
     Dosage: IN 250 CC NS WEEKLY INTRAVENOUS.
     Route: 042
     Dates: start: 20140424, end: 20140424

REACTIONS (4)
  - Flushing [None]
  - Pruritus [None]
  - Dyspnoea [None]
  - Infusion related reaction [None]
